FAERS Safety Report 13179998 (Version 1)
Quarter: 2017Q1

REPORT INFORMATION
  Report Type: Report from Study
  Country: US (occurrence: US)
  Receive Date: 20170202
  Receipt Date: 20170202
  Transmission Date: 20170428
  Serious: Yes (Hospitalization)
  Sender: FDA-Public Use
  Company Number: PHHO2017US001380

PATIENT
  Age: 75 Year
  Sex: Female
  Weight: 54 kg

DRUGS (2)
  1. TOPOTECAN HYDROCHLORIDE. [Suspect]
     Active Substance: TOPOTECAN HYDROCHLORIDE
     Indication: SPINDLE CELL SARCOMA
     Dosage: 8 MG, (1, 8, 15)
     Route: 048
     Dates: start: 20160405, end: 20160410
  2. PAZOPANIB [Suspect]
     Active Substance: PAZOPANIB
     Indication: SPINDLE CELL SARCOMA
     Dosage: 800 MG, QD
     Route: 048
     Dates: start: 20160405, end: 20160410

REACTIONS (1)
  - Cancer pain [Unknown]

NARRATIVE: CASE EVENT DATE: 20160413
